FAERS Safety Report 7456045-0 (Version None)
Quarter: 2011Q2

REPORT INFORMATION
  Report Type: 
  Country: None (occurrence: None)
  Receive Date: 20110503
  Receipt Date: 20110428
  Transmission Date: 20111010
  Serious: Yes (Other)
  Sender: FDA-Public Use
  Company Number: US-PFIZER INC-2011092280

PATIENT
  Sex: Female

DRUGS (2)
  1. SUTENT [Suspect]
     Indication: METASTASES TO LIVER
  2. SUTENT [Suspect]
     Indication: CARCINOID TUMOUR
     Dosage: UNK
     Dates: start: 20110331

REACTIONS (1)
  - HEPATOTOXICITY [None]
